FAERS Safety Report 25217089 (Version 1)
Quarter: 2025Q2

REPORT INFORMATION
  Report Type: Spontaneous
  Country: US (occurrence: US)
  Receive Date: 20250419
  Receipt Date: 20250419
  Transmission Date: 20250717
  Serious: Yes (Hospitalization)
  Sender: AMGEN
  Company Number: US-AMGEN-USASP2025074631

PATIENT
  Age: 66 Year
  Sex: Female

DRUGS (6)
  1. PREDNISONE [Suspect]
     Active Substance: PREDNISONE
     Indication: Myasthenia gravis
     Route: 065
  2. PREDNISONE [Suspect]
     Active Substance: PREDNISONE
     Route: 065
  3. PREDNISONE [Suspect]
     Active Substance: PREDNISONE
     Route: 065
  4. CEMIPLIMAB [Concomitant]
     Active Substance: CEMIPLIMAB
     Indication: Metastatic squamous cell carcinoma
  5. PYRIDOSTIGMINE [Concomitant]
     Active Substance: PYRIDOSTIGMINE
     Indication: Myasthenia gravis
  6. Immunoglobulin [Concomitant]
     Indication: Myasthenia gravis
     Route: 040

REACTIONS (14)
  - Facial paralysis [Unknown]
  - Cervical spinal stenosis [Unknown]
  - Diarrhoea [Unknown]
  - Weight decreased [Unknown]
  - Dysphagia [Unknown]
  - Dysphonia [Unknown]
  - Eyelid ptosis [Not Recovered/Not Resolved]
  - Neutrophilia [Unknown]
  - Facial asymmetry [Unknown]
  - Diplopia [Not Recovered/Not Resolved]
  - Asthenia [Unknown]
  - Dyspnoea [Unknown]
  - Myopathy [Not Recovered/Not Resolved]
  - Off label use [Unknown]
